FAERS Safety Report 20437750 (Version 1)
Quarter: 2022Q1

REPORT INFORMATION
  Report Type: Spontaneous
  Country: JP (occurrence: JP)
  Receive Date: 20220207
  Receipt Date: 20220207
  Transmission Date: 20220423
  Serious: Yes (Life-Threatening, Other)
  Sender: FDA-Public Use
  Company Number: JP-NOVARTISPH-NVSJ2014JP002128

PATIENT
  Age: 4 Year
  Sex: Male

DRUGS (6)
  1. GLIVEC [Suspect]
     Active Substance: IMATINIB MESYLATE
     Indication: Acute lymphocytic leukaemia
     Dosage: 340 MG/M2, QD
     Route: 048
     Dates: start: 201307, end: 20130811
  2. GLIVEC [Suspect]
     Active Substance: IMATINIB MESYLATE
     Dosage: UNK
     Route: 048
  3. DEXAMETHASONE [Concomitant]
     Active Substance: DEXAMETHASONE
     Indication: Acute lymphocytic leukaemia
     Dosage: UNK
     Route: 065
  4. VINCRISTINE SULFATE [Concomitant]
     Active Substance: VINCRISTINE SULFATE
     Indication: Acute lymphocytic leukaemia
     Dosage: UNK
     Route: 065
  5. DOXORUBICIN HYDROCHLORIDE [Concomitant]
     Active Substance: DOXORUBICIN HYDROCHLORIDE
     Indication: Acute lymphocytic leukaemia
     Dosage: UNK
     Route: 065
  6. ASPARAGINASE [Concomitant]
     Active Substance: ASPARAGINASE
     Indication: Acute lymphocytic leukaemia
     Dosage: UNK
     Route: 065

REACTIONS (7)
  - Septic shock [Recovering/Resolving]
  - Acute respiratory distress syndrome [Recovering/Resolving]
  - Acute kidney injury [Unknown]
  - Cardiac failure [Unknown]
  - Myelosuppression [Recovering/Resolving]
  - Enteritis infectious [Recovering/Resolving]
  - Abdominal pain [Unknown]

NARRATIVE: CASE EVENT DATE: 20130810
